APPROVED DRUG PRODUCT: GENTAMICIN SULFATE
Active Ingredient: GENTAMICIN SULFATE
Strength: EQ 10MG BASE/ML
Dosage Form/Route: INJECTABLE;INJECTION
Application: A062420 | Product #001 | TE Code: AP
Applicant: HOSPIRA INC
Approved: Aug 15, 1983 | RLD: No | RS: No | Type: RX